FAERS Safety Report 10550520 (Version 1)
Quarter: 2014Q4

REPORT INFORMATION
  Report Type: Spontaneous
  Country: US (occurrence: US)
  Receive Date: 20141029
  Receipt Date: 20141029
  Transmission Date: 20150529
  Serious: No
  Sender: FDA-Public Use
  Company Number: US-TEVA-501754USA

PATIENT
  Age: 72 Year
  Sex: Male
  Weight: 67.19 kg

DRUGS (3)
  1. PREDNISONE. [Interacting]
     Active Substance: PREDNISONE
     Indication: LUNG DISORDER
     Dosage: DOSAGE UNKNOWN
  2. COUMADIN [Concomitant]
     Active Substance: WARFARIN SODIUM
     Indication: CARDIAC DISORDER
  3. PROVIGIL [Suspect]
     Active Substance: MODAFINIL
     Indication: SLEEP APNOEA SYNDROME
     Dosage: DOSAGE UNKNOWN
     Dates: start: 20140607

REACTIONS (1)
  - Drug interaction [Not Recovered/Not Resolved]

NARRATIVE: CASE EVENT DATE: 20140607
